FAERS Safety Report 16046095 (Version 1)
Quarter: 2019Q2

REPORT INFORMATION
  Report Type: Spontaneous
  Country: US (occurrence: US)
  Receive Date: 20190307
  Receipt Date: 20190307
  Transmission Date: 20190711
  Serious: No
  Sender: FDA-Public Use
  Company Number: None

PATIENT
  Age: 50 Year
  Sex: Male
  Weight: 80.1 kg

DRUGS (2)
  1. QVAR REDIHALER [Suspect]
     Active Substance: BECLOMETHASONE DIPROPIONATE
     Indication: ASTHMA
     Dosage: ?          OTHER STRENGTH:MCG;QUANTITY:2 SPRAY(S);?
     Route: 055
     Dates: start: 20190207, end: 20190307
  2. RANITIDENE [Concomitant]

REACTIONS (2)
  - Device malfunction [None]
  - Incorrect dose administered by device [None]

NARRATIVE: CASE EVENT DATE: 20190306
